FAERS Safety Report 9079767 (Version 3)
Quarter: 2014Q2

REPORT INFORMATION
  Report Type: Report from Study
  Country: US (occurrence: US)
  Receive Date: 20130215
  Receipt Date: 20140605
  Transmission Date: 20141212
  Serious: Yes (Death)
  Sender: FDA-Public Use
  Company Number: US-VIIV HEALTHCARE LIMITED-B0845382A

PATIENT
  Age: 63 Year
  Sex: Female
  Weight: 91.8 kg

DRUGS (10)
  1. MARAVIROC [Suspect]
     Indication: HIV INFECTION
     Dosage: 600MG TWICE PER DAY
     Route: 048
     Dates: start: 20090401
  2. RALTEGRAVIR [Concomitant]
     Indication: HIV INFECTION
     Route: 048
     Dates: start: 20090401
  3. ETRAVIRINE [Concomitant]
     Indication: HIV INFECTION
     Route: 048
     Dates: start: 20090401
  4. VALACYCLOVIR [Concomitant]
     Indication: HERPES ZOSTER
     Route: 048
     Dates: start: 20101123
  5. CLONIDINE [Concomitant]
     Indication: HYPERTENSION
     Dosage: .2MG PER DAY
     Route: 048
     Dates: start: 20110907
  6. TRANDATE [Concomitant]
     Indication: HYPERTENSION
     Dosage: 400MG PER DAY
     Route: 048
     Dates: start: 20120624
  7. DULOXETINE [Concomitant]
     Route: 048
     Dates: start: 20120101
  8. ISOSORBIDE MONONITRATE [Concomitant]
     Dosage: 30MG PER DAY
     Route: 048
     Dates: start: 20120702
  9. NITROSTAT [Concomitant]
     Route: 060
     Dates: start: 20120701
  10. DIOVAN HCT [Concomitant]

REACTIONS (1)
  - Myocardial infarction [Fatal]
